FAERS Safety Report 5300733-9 (Version None)
Quarter: 2007Q2

REPORT INFORMATION
  Report Type: 
  Country: None (occurrence: None)
  Receive Date: 20070418
  Receipt Date: 20070409
  Transmission Date: 20071010
  Serious: Yes (Other)
  Sender: FDA-Public Use
  Company Number: US-KINGPHARMUSA00001-K200700443

PATIENT

DRUGS (4)
  1. ALTACE [Suspect]
     Indication: BLOOD PRESSURE
     Dosage: 2.5 MG, QD
     Route: 048
     Dates: start: 20070201, end: 20070201
  2. ALTACE [Suspect]
     Dosage: 5 MG, QD
     Route: 048
     Dates: start: 20070201
  3. ASPIRIN [Concomitant]
     Dosage: 150 MG, QD
     Route: 048
  4. ATORVASTATIN CALCIUM [Concomitant]
     Indication: BLOOD CHOLESTEROL
     Dosage: 10 MG, QD

REACTIONS (4)
  - AGGRESSION [None]
  - ANGER [None]
  - DEPRESSED MOOD [None]
  - FEELING ABNORMAL [None]
